FAERS Safety Report 26057097 (Version 2)
Quarter: 2025Q4

REPORT INFORMATION
  Report Type: Spontaneous
  Country: US (occurrence: US)
  Receive Date: 20251118
  Receipt Date: 20251211
  Transmission Date: 20260118
  Serious: Yes (Hospitalization, Other)
  Sender: BAXTER
  Company Number: US-BAXTER-2025BAX024200

PATIENT
  Age: 46 Year
  Sex: Female
  Weight: 66 kg

DRUGS (5)
  1. SODIUM CHLORIDE [Suspect]
     Active Substance: SODIUM CHLORIDE
     Dosage: 100 ML, QD (ONCE EVERY 24 HOURS), NORMAL SALINE (0.9%) 1000ML WITH TOBRAMYCIN 600MG, (FIRST DOSE AT
     Route: 042
     Dates: start: 20251027
  2. SODIUM CHLORIDE [Suspect]
     Active Substance: SODIUM CHLORIDE
     Dosage: 100 ML, QD (ONCE EVERY 24 HOURS), NORMAL SALINE (0.9%) 1000ML WITH TOBRAMYCIN 600MG, (SECOND DOSE AT
     Route: 042
     Dates: start: 20251028, end: 20251031
  3. TOBRAMYCIN SULFATE [Suspect]
     Active Substance: TOBRAMYCIN SULFATE
     Indication: Cystic fibrosis
     Dosage: UNK (TREATMENT WITH TOBRAMYCIN AT HOSPITAL)
     Route: 065
     Dates: start: 20251017
  4. TOBRAMYCIN SULFATE [Suspect]
     Active Substance: TOBRAMYCIN SULFATE
     Dosage: 600 MG, QD (WITH NORMAL SALINE 100ML), (FIRST DOSE AT HOME), IV BOTTLE
     Route: 042
     Dates: start: 20251027
  5. TOBRAMYCIN SULFATE [Suspect]
     Active Substance: TOBRAMYCIN SULFATE
     Dosage: 600 MG, QD (WITH NORMAL SALINE 100ML), (SECOND DOSE AT HOME), IV BOTTLE
     Route: 042
     Dates: start: 20251028, end: 20251031

REACTIONS (4)
  - Acute kidney injury [Recovered/Resolved with Sequelae]
  - Blood creatinine abnormal [Not Recovered/Not Resolved]
  - Toxicity to various agents [Not Recovered/Not Resolved]
  - Product dose omission issue [Unknown]

NARRATIVE: CASE EVENT DATE: 20251026
